FAERS Safety Report 10684869 (Version 1)
Quarter: 2014Q4

REPORT INFORMATION
  Report Type: Spontaneous
  Country: US (occurrence: None)
  Receive Date: 20141230
  Receipt Date: 20141230
  Transmission Date: 20150529
  Serious: Yes (Life-Threatening)
  Sender: FDA-Public Use
  Company Number: None

PATIENT
  Age: 69 Year
  Sex: Male
  Weight: 86.18 kg

DRUGS (1)
  1. ATORVASTATIN 40 MG GREENSTONE LLC [Suspect]
     Active Substance: ATORVASTATIN
     Indication: BLOOD CHOLESTEROL INCREASED
     Route: 048
     Dates: start: 20141106, end: 20141114

REACTIONS (2)
  - Myocardial infarction [None]
  - Blood pressure difference of extremities [None]

NARRATIVE: CASE EVENT DATE: 20141107
